FAERS Safety Report 9549589 (Version 3)
Quarter: 2014Q2

REPORT INFORMATION
  Report Type: Spontaneous
  Country: US (occurrence: US)
  Receive Date: 20130924
  Receipt Date: 20140429
  Transmission Date: 20141212
  Serious: Yes (Death, Hospitalization, Other)
  Sender: FDA-Public Use
  Company Number: US-B.I. PHARMACEUTICALS,INC./RIDGEFIELD-2013-BI-29652BP

PATIENT
  Age: 81 Year
  Sex: Male
  Weight: 90.72 kg

DRUGS (11)
  1. PRADAXA [Suspect]
     Indication: ATRIAL FIBRILLATION
     Dosage: 150 MG
     Route: 065
     Dates: start: 20120316, end: 20120325
  2. ZAROXOLYN [Concomitant]
     Route: 065
  3. METOPROLOL [Concomitant]
     Dosage: 50 MG
     Route: 048
  4. PLAVIX [Concomitant]
     Route: 065
  5. SIMVASTATIN [Concomitant]
     Dosage: 20 MG
     Route: 048
     Dates: start: 2006, end: 2012
  6. LASIX [Concomitant]
     Dosage: 20 MG
     Route: 048
  7. LEXAPRO [Concomitant]
     Dosage: 10 MG
     Route: 048
  8. GLIMEPIRIDE [Concomitant]
     Dosage: 1 MG
     Route: 048
  9. PANTOPRAZOLE [Concomitant]
     Route: 065
  10. METOLAZONE [Concomitant]
     Route: 048
     Dates: start: 2011
  11. POTASSIUM CHLORIDE [Concomitant]
     Route: 048

REACTIONS (5)
  - Gastrointestinal haemorrhage [Fatal]
  - Coronary artery thrombosis [Fatal]
  - Myocardial infarction [Unknown]
  - Haemorrhagic anaemia [Unknown]
  - Renal impairment [Unknown]
